FAERS Safety Report 10073492 (Version 1)
Quarter: 2014Q2

REPORT INFORMATION
  Report Type: Report from Study
  Country: US (occurrence: US)
  Receive Date: 20140411
  Receipt Date: 20140411
  Transmission Date: 20141212
  Serious: Yes (Hospitalization)
  Sender: FDA-Public Use
  Company Number: US-ABBVIE-14P-163-1220823-00

PATIENT
  Age: 63 Year
  Sex: Female

DRUGS (4)
  1. HUMIRA [Suspect]
     Indication: COLITIS ULCERATIVE
     Dates: start: 20140226
  2. HUMIRA [Suspect]
     Dates: start: 20140312
  3. LORAZEPAM [Concomitant]
     Indication: ANXIETY
     Dosage: 1 MG-3MG A DAY
  4. LIBRIUM [Concomitant]
     Indication: ANXIETY

REACTIONS (4)
  - Generalised tonic-clonic seizure [Recovered/Resolved]
  - Nasopharyngitis [Unknown]
  - Anxiety [Unknown]
  - Muscle twitching [Unknown]
